FAERS Safety Report 6416846-4 (Version None)
Quarter: 2009Q4

REPORT INFORMATION
  Report Type: 
  Country: None (occurrence: None)
  Receive Date: 20091027
  Receipt Date: 20091013
  Transmission Date: 20100525
  Serious: Yes (Other)
  Sender: FDA-Public Use
  Company Number: GB-MYLANLABS-2009S1017904

PATIENT
  Age: 40 Year
  Sex: Male

DRUGS (8)
  1. FLUOXETINE [Suspect]
     Indication: DEPRESSION
     Dates: start: 20051001
  2. FLUOXETINE [Suspect]
     Dates: start: 20081118
  3. FLUOXETINE [Suspect]
  4. CLOZARIL [Suspect]
     Indication: SCHIZOPHRENIA
     Dates: start: 20031120
  5. CLOZARIL [Suspect]
     Dates: start: 20080701
  6. CLOZARIL [Suspect]
  7. LACTULOSE [Concomitant]
     Indication: CONSTIPATION
     Route: 048
  8. AMISULPRIDE [Concomitant]
     Dates: start: 20061201

REACTIONS (4)
  - DIZZINESS [None]
  - DRUG LEVEL INCREASED [None]
  - ELECTROCARDIOGRAM QT PROLONGED [None]
  - VENTRICULAR EXTRASYSTOLES [None]
